FAERS Safety Report 7393160-4 (Version None)
Quarter: 2011Q2

REPORT INFORMATION
  Report Type: 
  Country: None (occurrence: None)
  Receive Date: 20110404
  Receipt Date: 20110321
  Transmission Date: 20111010
  Serious: Yes (Hospitalization)
  Sender: FDA-Public Use
  Company Number: US-MYLANLABS-2011S1005990

PATIENT
  Age: 64 Year
  Sex: Male

DRUGS (8)
  1. VYTORIN [Interacting]
     Indication: HYPERCHOLESTEROLAEMIA
     Dosage: EZETIMIBE/SIMVASTATIN 10/80MG DAILY
     Route: 048
  2. FENOFIBRATE [Concomitant]
     Route: 048
  3. KETOCONAZOLE [Interacting]
     Dosage: INCREASED FROM 200MG THREE TIMES DAILY IN FEBRUARY
     Route: 048
     Dates: start: 20090101
  4. PREDNISONE [Concomitant]
     Indication: PROSTATE CANCER
     Route: 048
     Dates: start: 20090101
  5. LEUPRORELIN [Concomitant]
     Indication: ANTIANDROGEN THERAPY
     Route: 030
  6. LEVOTHYROXINE SODIUM [Concomitant]
     Route: 048
  7. KETOCONAZOLE [Suspect]
     Indication: PROSTATE CANCER
     Dosage: INCREASED TO 400MG THREE TIMES DAILY IN FEBRUARY
     Route: 048
     Dates: start: 20090101
  8. VERAPAMIL [Concomitant]
     Route: 048

REACTIONS (3)
  - DRUG INTERACTION [None]
  - RHABDOMYOLYSIS [None]
  - RENAL FAILURE ACUTE [None]
